FAERS Safety Report 23278714 (Version 1)
Quarter: 2023Q4

REPORT INFORMATION
  Report Type: Spontaneous
  Country: CN (occurrence: CN)
  Receive Date: 20231208
  Receipt Date: 20231208
  Transmission Date: 20240109
  Serious: Yes (Hospitalization)
  Sender: FDA-Public Use
  Company Number: CN-WOODWARD-2023-CN-000660

PATIENT
  Age: 65 Year
  Sex: Female

DRUGS (4)
  1. RABEPRAZOLE SODIUM [Suspect]
     Active Substance: RABEPRAZOLE SODIUM
     Indication: Helicobacter infection
     Dosage: 20.0 MILLIGRAM(S) (10 MILLIGRAM(S), 1 IN 12 HOUR)
     Route: 048
     Dates: start: 20231109, end: 20231122
  2. CLARITHROMYCIN [Suspect]
     Active Substance: CLARITHROMYCIN
     Dosage: 1.0 GRAM(S) (0.5 GRAM(S), 1 IN 12 HOUR)
     Route: 048
     Dates: start: 20231109, end: 20231122
  3. FURAZOLIDONE [Suspect]
     Active Substance: FURAZOLIDONE
     Dosage: 200.0 MILLIGRAM(S) (100 MILLIGRAM(S), 1 IN 12 HOUR)
     Route: 048
     Dates: start: 20231109, end: 20231122
  4. BISMUTH [Suspect]
     Active Substance: BISMUTH
     Dosage: 400.0 MILLIGRAM(S) (200 MILLIGRAM(S), 1 IN 12 HOUR)
     Route: 048
     Dates: start: 20231109, end: 20231122

REACTIONS (5)
  - Chest discomfort [Recovering/Resolving]
  - Palpitations [Recovering/Resolving]
  - Asthenia [Recovering/Resolving]
  - Nausea [Recovered/Resolved]
  - Dizziness [Recovered/Resolved]

NARRATIVE: CASE EVENT DATE: 20231115
